FAERS Safety Report 17213200 (Version 6)
Quarter: 2020Q1

REPORT INFORMATION
  Report Type: Spontaneous
  Country: PL (occurrence: PL)
  Receive Date: 20191230
  Receipt Date: 20200211
  Transmission Date: 20200409
  Serious: Yes (Death, Life-Threatening, Other)
  Sender: FDA-Public Use
  Company Number: PL-MYLANLABS-2019M1129243

PATIENT
  Age: 51 Year
  Sex: Female

DRUGS (14)
  1. PACLITAXEL. [Interacting]
     Active Substance: PACLITAXEL
     Indication: CHRONIC MYELOID LEUKAEMIA
     Dosage: 1 DOSAGE FORM, QW
     Route: 065
  2. LETROZOLE. [Suspect]
     Active Substance: LETROZOLE
     Indication: BREAST CANCER
  3. CAPECITABINE. [Suspect]
     Active Substance: CAPECITABINE
     Indication: CHRONIC MYELOID LEUKAEMIA
     Dosage: UNK
     Route: 065
     Dates: start: 201707
  4. TAMOXIFEN CITRATE. [Suspect]
     Active Substance: TAMOXIFEN CITRATE
     Indication: BREAST CANCER
     Dosage: UNK
     Route: 065
  5. VINORELBINE [Suspect]
     Active Substance: VINORELBINE TARTRATE
     Indication: CHRONIC MYELOID LEUKAEMIA
     Dosage: UNK
     Route: 065
     Dates: start: 201710, end: 201804
  6. VINORELBINE DITARTRATE [Suspect]
     Active Substance: VINORELBINE TARTRATE
     Indication: CHRONIC MYELOID LEUKAEMIA
     Dosage: UNK
  7. TAMOXIFEN CITRATE. [Suspect]
     Active Substance: TAMOXIFEN CITRATE
     Indication: HORMONE THERAPY
     Dosage: UNK
     Route: 065
  8. LETROZOLE. [Suspect]
     Active Substance: LETROZOLE
     Indication: HORMONE THERAPY
     Dosage: UNK
     Route: 065
  9. CAPECITABINE. [Suspect]
     Active Substance: CAPECITABINE
     Indication: BREAST CANCER
  10. IMATINIB. [Suspect]
     Active Substance: IMATINIB MESYLATE
     Indication: CHRONIC MYELOID LEUKAEMIA
     Dosage: UNK
     Route: 065
     Dates: start: 201601, end: 201609
  11. IMATINIB. [Interacting]
     Active Substance: IMATINIB MESYLATE
     Indication: MYELOID LEUKAEMIA
     Dosage: UNK
     Route: 065
     Dates: start: 201705, end: 201707
  12. VINORELBINE [Suspect]
     Active Substance: VINORELBINE TARTRATE
     Indication: BREAST CANCER
  13. PACLITAXEL. [Interacting]
     Active Substance: PACLITAXEL
     Indication: BREAST CANCER
     Dosage: UNK UNK, QW
     Route: 065
     Dates: start: 201705, end: 201707
  14. PACLITAXEL. [Interacting]
     Active Substance: PACLITAXEL
     Dosage: UNK, 12 MONTHS
     Route: 065
     Dates: start: 201607, end: 201609

REACTIONS (12)
  - Polyneuropathy [Fatal]
  - Thrombocytopenia [Fatal]
  - Malignant neoplasm progression [Unknown]
  - Disease progression [Fatal]
  - Drug interaction [Fatal]
  - Anaemia [Fatal]
  - Breast cancer [Unknown]
  - Chronic myeloid leukaemia [Fatal]
  - Off label use [Unknown]
  - Therapy partial responder [Unknown]
  - Product use in unapproved indication [Fatal]
  - Second primary malignancy [Recovering/Resolving]

NARRATIVE: CASE EVENT DATE: 2016
